FAERS Safety Report 8435604-2 (Version None)
Quarter: 2012Q2

REPORT INFORMATION
  Report Type: 
  Country: None (occurrence: None)
  Receive Date: 20120608
  Receipt Date: 20120531
  Transmission Date: 20120825
  Serious: Yes (Hospitalization)
  Sender: FDA-Public Use
  Company Number: 2012SP018310

PATIENT
  Age: 69 Year
  Sex: Female
  Weight: 49 kg

DRUGS (4)
  1. PEG-INTRON [Suspect]
     Indication: HEPATITIS C
     Dosage: 1.5 MCG/KG;QW;SC
     Route: 058
     Dates: start: 20120210, end: 20120316
  2. TELAVIC (ANTIVIRALS NOS) [Suspect]
     Indication: HEPATITIS C
     Dosage: 1500 MG;QD;PO
     Route: 048
     Dates: start: 20120210, end: 20120320
  3. REBETOL [Suspect]
     Indication: HEPATITIS C
     Dosage: 200 MG;QD;PO
     Route: 048
     Dates: start: 20120210, end: 20120320
  4. RABEPRAZOLE SODIUM [Concomitant]

REACTIONS (4)
  - NAUSEA [None]
  - CEREBRAL INFARCTION [None]
  - RASH [None]
  - HYPOAESTHESIA [None]
